FAERS Safety Report 8313014-6 (Version None)
Quarter: 2012Q2

REPORT INFORMATION
  Report Type: 
  Country: None (occurrence: None)
  Receive Date: 20120426
  Receipt Date: 20120416
  Transmission Date: 20120825
  Serious: Yes (Hospitalization)
  Sender: FDA-Public Use
  Company Number: JP-CELGENEUS-087-21660-12040107

PATIENT
  Sex: Female
  Weight: 52 kg

DRUGS (10)
  1. DOCETAXEL [Suspect]
     Route: 065
  2. ABRAXANE [Suspect]
     Dosage: 238 MILLIGRAM
     Route: 065
     Dates: start: 20120301, end: 20120315
  3. SIMVASTATIN [Concomitant]
     Indication: HYPERLIPIDAEMIA
     Dosage: 5 MILLIGRAM
     Route: 048
     Dates: end: 20120313
  4. OXYGEN [Concomitant]
     Indication: DISCOMFORT
     Dosage: 2 L/MIN
     Route: 065
     Dates: start: 20120329, end: 20120401
  5. AMLODIPINE [Concomitant]
     Indication: HYPERTENSION
     Dosage: 2.5 MILLIGRAM
     Route: 048
  6. PREDNISOLONE [Concomitant]
     Dosage: 40 MILLIGRAM
     Route: 065
     Dates: start: 20120413
  7. PREDNISOLONE [Concomitant]
     Dosage: 50 MILLIGRAM
     Route: 065
     Dates: start: 20120330
  8. COTRIM [Concomitant]
     Indication: PNEUMONIA
     Dosage: 4 TABLET
     Route: 065
     Dates: start: 20120330
  9. ABRAXANE [Suspect]
     Indication: BREAST CANCER METASTATIC
     Dosage: 238 MILLIGRAM
     Route: 065
     Dates: start: 20111222, end: 20120315
  10. URSO 250 [Concomitant]
     Indication: JAUNDICE
     Dosage: 300 MILLIGRAM
     Route: 048
     Dates: start: 20111201

REACTIONS (2)
  - DECREASED APPETITE [None]
  - PNEUMONITIS [None]
